FAERS Safety Report 19161639 (Version 1)
Quarter: 2021Q2

REPORT INFORMATION
  Report Type: Spontaneous
  Country: US (occurrence: US)
  Receive Date: 20210420
  Receipt Date: 20210420
  Transmission Date: 20210717
  Serious: Yes (Other)
  Sender: FDA-Public Use
  Company Number: None

PATIENT
  Age: 60 Year
  Sex: Male
  Weight: 67.5 kg

DRUGS (3)
  1. BUSPIRONE [Suspect]
     Active Substance: BUSPIRONE HYDROCHLORIDE
     Indication: GENERALISED ANXIETY DISORDER
     Route: 048
  2. REMERON [Concomitant]
     Active Substance: MIRTAZAPINE
  3. MELATONIN [Concomitant]
     Active Substance: MELATONIN

REACTIONS (4)
  - Haemorrhage [None]
  - Abdominal pain upper [None]
  - Diarrhoea haemorrhagic [None]
  - Muscle twitching [None]

NARRATIVE: CASE EVENT DATE: 20180511
